FAERS Safety Report 7121297-3 (Version None)
Quarter: 2010Q4

REPORT INFORMATION
  Report Type: 
  Country: None (occurrence: None)
  Receive Date: 20101122
  Receipt Date: 20101122
  Transmission Date: 20110411
  Serious: Yes (Other)
  Sender: FDA-Public Use
  Company Number: None

PATIENT
  Age: 70 Year
  Sex: Male
  Weight: 88.905 kg

DRUGS (2)
  1. TAMSULOSIN HCL [Suspect]
     Indication: BENIGN PROSTATIC HYPERPLASIA
     Dosage: 1 CAP TWICE DAILY PO
     Route: 048
     Dates: start: 20101101, end: 20101118
  2. FLOMAX [Suspect]
     Indication: BENIGN PROSTATIC HYPERPLASIA

REACTIONS (5)
  - DRUG INEFFECTIVE [None]
  - DYSURIA [None]
  - POLLAKIURIA [None]
  - PRODUCT SUBSTITUTION ISSUE [None]
  - URINARY RETENTION [None]
